FAERS Safety Report 6463885-3 (Version None)
Quarter: 2009Q4

REPORT INFORMATION
  Report Type: 
  Country: None (occurrence: None)
  Receive Date: 20091201
  Receipt Date: 20090929
  Transmission Date: 20100525
  Serious: Yes (Death)
  Sender: FDA-Public Use
  Company Number: US-ELI_LILLY_AND_COMPANY-US200910000285

PATIENT

DRUGS (10)
  1. GEMCITABINE HCL [Suspect]
     Indication: TRANSITIONAL CELL CARCINOMA
     Dosage: 2000 MG/M2, DAY 1 EVERY 2 WEEKS
     Route: 042
  2. DOXORUBICIN HCL [Concomitant]
     Indication: TRANSITIONAL CELL CARCINOMA
     Dosage: 50 MG/M2, DAY 1 EVERY 2 WEEKS
     Route: 042
  3. RECOMBINANT HUMAN GROWTH HORMONE [Concomitant]
     Route: 058
  4. IFOSFAMIDE [Concomitant]
     Indication: TRANSITIONAL CELL CARCINOMA
     Dosage: 1500 MG/M2, DAY 1, 2, AND 3
     Route: 042
  5. PACLITAXEL [Concomitant]
     Indication: TRANSITIONAL CELL CARCINOMA
     Dosage: 200 MG/M2, DAY 1, 3 HR INFUSION
     Route: 042
  6. CISPLATIN [Concomitant]
     Indication: TRANSITIONAL CELL CARCINOMA
     Dosage: 70 MG/M2, DAY 1
  7. MESNA [Concomitant]
     Indication: TRANSITIONAL CELL CARCINOMA
     Dosage: 300 MG/M2, OTHER
     Route: 042
  8. DEXAMETHASONE TAB [Concomitant]
     Indication: PREMEDICATION
  9. DIPHENHYDRAMINE HCL [Concomitant]
     Indication: PREMEDICATION
  10. CIMETIDINE [Concomitant]
     Indication: PREMEDICATION

REACTIONS (1)
  - SEPSIS [None]
